FAERS Safety Report 4588148-2 (Version None)
Quarter: 2005Q1

REPORT INFORMATION
  Report Type: 
  Country: None (occurrence: None)
  Receive Date: 20050221
  Receipt Date: 20040510
  Transmission Date: 20050727
  Serious: Yes (Other)
  Sender: FDA-Public Use
  Company Number: PHRM2004DZ01806

PATIENT
  Age: 83 Year
  Sex: Female
  Weight: 45 kg

DRUGS (6)
  1. CELEBREX [Suspect]
     Route: 048
  2. VOLTAREN [Suspect]
     Route: 065
  3. VOLTAREN [Suspect]
     Route: 065
  4. ACETAMINOPHEN [Suspect]
  5. CELESTENE [Suspect]
     Route: 065
  6. COTAREG [Suspect]
     Indication: HYPERTENSION
     Dosage: 1 DF, QD
     Route: 048

REACTIONS (3)
  - DIZZINESS [None]
  - FALL [None]
  - FATIGUE [None]
